FAERS Safety Report 22617754 (Version 1)
Quarter: 2023Q2

REPORT INFORMATION
  Report Type: Spontaneous
  Country: US (occurrence: US)
  Receive Date: 20230620
  Receipt Date: 20230620
  Transmission Date: 20230722
  Serious: No
  Sender: FDA-Public Use
  Company Number: US-ELI_LILLY_AND_COMPANY-US202306011223

PATIENT
  Sex: Male

DRUGS (3)
  1. EMGALITY [Suspect]
     Active Substance: GALCANEZUMAB-GNLM
     Indication: Cluster headache
     Dosage: 240 MG, OTHER (LOADING DOSE)
     Route: 065
     Dates: start: 20230524
  2. INDOMETHACIN [Concomitant]
     Active Substance: INDOMETHACIN
     Indication: Headache
     Dosage: 50 MG, DAILY
     Route: 065
     Dates: start: 20230503
  3. OX-MAZETOL [Concomitant]
     Indication: Seizure
     Dosage: 600 MG, UNKNOWN
     Route: 065
     Dates: start: 20230503

REACTIONS (1)
  - Prescribed underdose [Unknown]

NARRATIVE: CASE EVENT DATE: 20230524
